FAERS Safety Report 11546504 (Version 2)
Quarter: 2017Q1

REPORT INFORMATION
  Report Type: Spontaneous
  Country: US (occurrence: US)
  Receive Date: 20150924
  Receipt Date: 20170310
  Transmission Date: 20170428
  Serious: Yes (Other)
  Sender: FDA-Public Use
  Company Number: US-ELI_LILLY_AND_COMPANY-US201509004837

PATIENT
  Age: 47 Year
  Sex: Female

DRUGS (5)
  1. PROZAC [Concomitant]
     Active Substance: FLUOXETINE HYDROCHLORIDE
     Dosage: 20 MG, QD
     Route: 048
  2. CYMBALTA [Suspect]
     Active Substance: DULOXETINE HYDROCHLORIDE
     Indication: PRODUCT USED FOR UNKNOWN INDICATION
     Dosage: 1 DF, UNKNOWN
     Route: 065
  3. PROZAC [Concomitant]
     Active Substance: FLUOXETINE HYDROCHLORIDE
     Dosage: 40 MG, QD
     Route: 048
     Dates: start: 20130328
  4. CYMBALTA [Suspect]
     Active Substance: DULOXETINE HYDROCHLORIDE
     Dosage: 30 MG, QD
     Route: 048
     Dates: start: 20130125
  5. CYMBALTA [Suspect]
     Active Substance: DULOXETINE HYDROCHLORIDE
     Dosage: 60 MG, BID
     Route: 048
     Dates: start: 20140102

REACTIONS (21)
  - Dysphemia [Unknown]
  - Agitation [Unknown]
  - Headache [Unknown]
  - Paraesthesia [Unknown]
  - Sensory disturbance [Unknown]
  - Tremor [Unknown]
  - Disturbance in attention [Unknown]
  - Memory impairment [Unknown]
  - Dizziness [Unknown]
  - Hyperhidrosis [Unknown]
  - Anxiety [Unknown]
  - Insomnia [Unknown]
  - Migraine [Unknown]
  - Confusional state [Unknown]
  - Suicidal ideation [Unknown]
  - Irritability [Unknown]
  - Influenza like illness [Unknown]
  - Hallucination [Unknown]
  - Aggression [Unknown]
  - Withdrawal syndrome [Unknown]
  - Vertigo [Unknown]

NARRATIVE: CASE EVENT DATE: 20130427
